FAERS Safety Report 19281340 (Version 3)
Quarter: 2022Q2

REPORT INFORMATION
  Report Type: Report from Study
  Country: GB (occurrence: GB)
  Receive Date: 20210521
  Receipt Date: 20220511
  Transmission Date: 20220720
  Serious: Yes (Hospitalization)
  Sender: FDA-Public Use
  Company Number: GB-BRISTOL-MYERS SQUIBB COMPANY-BMS-2021-048074

PATIENT
  Age: 85 Year
  Sex: Female

DRUGS (1)
  1. ABATACEPT [Suspect]
     Active Substance: ABATACEPT
     Indication: Rheumatoid arthritis
     Dosage: 125 MILLIGRAM, QWK
     Route: 058
     Dates: start: 20210120

REACTIONS (2)
  - Arthritis [Unknown]
  - Dizziness [Not Recovered/Not Resolved]
